FAERS Safety Report 16687315 (Version 1)
Quarter: 2019Q4

REPORT INFORMATION
  Report Type: Spontaneous
  Country: US (occurrence: US)
  Receive Date: 20190808
  Receipt Date: 20190808
  Transmission Date: 20200122
  Serious: Yes (Hospitalization)
  Sender: FDA-Public Use
  Company Number: None

PATIENT
  Age: 58 Year
  Sex: Female

DRUGS (14)
  1. FERRUS SULFATE [Concomitant]
     Dates: start: 20160608
  2. NEUPOGEN [Suspect]
     Active Substance: FILGRASTIM
     Indication: BONE DISORDER
     Dosage: ?          OTHER FREQUENCY:FIVE DAYS PER WEEK;?
     Route: 058
     Dates: start: 20190528
  3. ENBREL [Concomitant]
     Active Substance: ETANERCEPT
     Dates: start: 20160510
  4. BENADRYL [Concomitant]
     Active Substance: DIPHENHYDRAMINE HYDROCHLORIDE
     Dates: start: 20160510
  5. CLOBETASOL [Concomitant]
     Active Substance: CLOBETASOL
     Dates: start: 20160510
  6. PROAIR HFA [Concomitant]
     Active Substance: ALBUTEROL SULFATE
     Dates: start: 20160510
  7. CALCIUM CITRATE/VITAMIN D [Concomitant]
     Active Substance: CALCIUM CITRATE\VITAMIN D
     Dates: start: 20160608
  8. ASPIRIN CHEW [Concomitant]
     Dates: start: 20160608
  9. CYMBALTA [Concomitant]
     Active Substance: DULOXETINE HYDROCHLORIDE
     Dates: start: 20160510
  10. SOMA [Concomitant]
     Active Substance: CARISOPRODOL
     Dates: start: 20160510
  11. LIPITOR [Concomitant]
     Active Substance: ATORVASTATIN CALCIUM
     Dates: start: 20160510
  12. NEUPOGEN [Suspect]
     Active Substance: FILGRASTIM
     Indication: CHONDROPATHY
     Dosage: ?          OTHER FREQUENCY:FIVE DAYS PER WEEK;?
     Route: 058
     Dates: start: 20190528
  13. CYCLOBENZAPRINE. [Concomitant]
     Active Substance: CYCLOBENZAPRINE
     Dates: start: 20160510
  14. DIFLUCAN [Concomitant]
     Active Substance: FLUCONAZOLE
     Dates: start: 20160510

REACTIONS (2)
  - Electrocardiogram QT prolonged [None]
  - Electrocardiogram T wave abnormal [None]
